FAERS Safety Report 4550183-8 (Version None)
Quarter: 2005Q1

REPORT INFORMATION
  Report Type: 
  Country: None (occurrence: None)
  Receive Date: 20050112
  Receipt Date: 20041225
  Transmission Date: 20050727
  Serious: Yes (Death, Life-Threatening, Hospitalization)
  Sender: FDA-Public Use
  Company Number: US-ABBOTT-04P-163-0284958-00

PATIENT
  Age: 17 Year
  Sex: Male

DRUGS (1)
  1. ULTANE [Suspect]
     Indication: SUICIDE ATTEMPT
     Route: 055
     Dates: start: 20041224, end: 20041224

REACTIONS (5)
  - CARDIAC ARREST [None]
  - FLUOROSIS [None]
  - MULTI-ORGAN FAILURE [None]
  - OVERDOSE [None]
  - SUICIDE ATTEMPT [None]
